FAERS Safety Report 5412060-X (Version None)
Quarter: 2007Q3

REPORT INFORMATION
  Report Type: 
  Country: None (occurrence: None)
  Receive Date: 20070809
  Receipt Date: 20070730
  Transmission Date: 20080115
  Serious: Yes (Life-Threatening, Other)
  Sender: FDA-Public Use
  Company Number: 07H-163-0312964-00

PATIENT
  Age: 45 Year
  Sex: Female

DRUGS (3)
  1. AMIODARONE HCL [Suspect]
     Indication: VENTRICULAR FIBRILLATION
     Dosage: 150 MG, INTRAVENOUS
     Route: 042
  2. AMIODARONE HCL [Suspect]
     Indication: VENTRICULAR TACHYCARDIA
     Dosage: 150 MG, INTRAVENOUS
     Route: 042
  3. PROCAINAMIDE [Suspect]
     Dosage: 750 MG, INTRAVENOUS
     Route: 042

REACTIONS (3)
  - BRUGADA SYNDROME [None]
  - VENTRICULAR FIBRILLATION [None]
  - VENTRICULAR TACHYCARDIA [None]
